FAERS Safety Report 5363204-X (Version None)
Quarter: 2007Q2

REPORT INFORMATION
  Report Type: 
  Country: None (occurrence: None)
  Receive Date: 20070618
  Receipt Date: 20070618
  Transmission Date: 20071010
  Serious: Yes (Death, Hospitalization)
  Sender: FDA-Public Use
  Company Number: None

PATIENT
  Sex: Male
  Weight: 71 kg

DRUGS (6)
  1. BEXAROTENE 75MG [Suspect]
     Indication: MYCOSIS FUNGOIDES
     Dosage: 300MG DAILY (PO)
     Route: 048
     Dates: start: 20050422, end: 20070313
  2. ATORVASTATIN [Concomitant]
  3. MIRTAZAPINE [Concomitant]
  4. LEVOTHYROXINE SODIUM [Concomitant]
  5. OMEPRAZOLE [Concomitant]
  6. TRIAMCINOLONE OINTMENT [Concomitant]

REACTIONS (9)
  - ABDOMINAL DISTENSION [None]
  - CHROMATURIA [None]
  - DECREASED APPETITE [None]
  - DIARRHOEA [None]
  - JAUNDICE [None]
  - LIVER FUNCTION TEST ABNORMAL [None]
  - NAUSEA [None]
  - RETCHING [None]
  - STOMACH DISCOMFORT [None]
